FAERS Safety Report 4714584-7 (Version None)
Quarter: 2005Q3

REPORT INFORMATION
  Report Type: 
  Country: None (occurrence: None)
  Receive Date: 20050714
  Receipt Date: 20050714
  Transmission Date: 20060218
  Serious: No
  Sender: FDA-Public Use
  Company Number: None

PATIENT
  Age: 83 Year
  Sex: Male
  Weight: 85 kg

DRUGS (1)
  1. PROPLEX T [Suspect]
     Indication: HAEMORRHAGE
     Dosage: 3000 UNITS ONCE INTRAVENOU
     Route: 042

REACTIONS (4)
  - CORONARY ARTERY OCCLUSION [None]
  - GRAFT COMPLICATION [None]
  - PROCEDURAL COMPLICATION [None]
  - THROMBOSIS [None]
